FAERS Safety Report 16942150 (Version 2)
Quarter: 2020Q1

REPORT INFORMATION
  Report Type: Spontaneous
  Country: GB (occurrence: GB)
  Receive Date: 20191021
  Receipt Date: 20200304
  Transmission Date: 20200409
  Serious: Yes (Life-Threatening)
  Sender: FDA-Public Use
  Company Number: GB-MYLANLABS-2019M1098931

PATIENT
  Age: 42 Year
  Sex: Female

DRUGS (2)
  1. PIRITON [Interacting]
     Active Substance: CHLORPHENIRAMINE MALEATE
     Indication: ARTHROPOD BITE
     Dosage: UNK
     Route: 048
     Dates: start: 20190825, end: 20190826
  2. TAMOXIFEN [Suspect]
     Active Substance: TAMOXIFEN
     Indication: BREAST CANCER
     Dosage: UNK

REACTIONS (8)
  - Suicidal ideation [Recovered/Resolved]
  - Irritability [Recovered/Resolved]
  - Fatigue [Recovered/Resolved]
  - Depression [Recovered/Resolved]
  - Tearfulness [Recovered/Resolved]
  - Inhibitory drug interaction [Unknown]
  - Nausea [Recovered/Resolved]
  - Mood swings [Recovered/Resolved]
